APPROVED DRUG PRODUCT: MORPHINE SULFATE
Active Ingredient: MORPHINE SULFATE
Strength: 8MG/ML (8MG/ML)
Dosage Form/Route: SOLUTION;INTRAMUSCULAR, INTRAVENOUS
Application: N204223 | Product #004
Applicant: FRESENIUS KABI USA LLC
Approved: Oct 30, 2013 | RLD: Yes | RS: No | Type: DISCN

PATENTS:
Patent 9192608 | Expires: Mar 12, 2034
Patent 9192608 | Expires: Mar 12, 2034
Patent 9072781 | Expires: Mar 12, 2034
Patent 9248229 | Expires: Mar 12, 2034